FAERS Safety Report 7394393-3 (Version None)
Quarter: 2011Q2

REPORT INFORMATION
  Report Type: 
  Country: None (occurrence: None)
  Receive Date: 20110405
  Receipt Date: 20110323
  Transmission Date: 20111010
  Serious: Yes (Hospitalization, Other)
  Sender: FDA-Public Use
  Company Number: US-ELI_LILLY_AND_COMPANY-US201101003893

PATIENT
  Sex: Female
  Weight: 39.4 kg

DRUGS (24)
  1. PEPCID [Concomitant]
     Dosage: 20 MG, 2/D
     Route: 048
  2. MIACALCIN [Concomitant]
     Dosage: 200 U, DAILY (1/D)
     Route: 045
  3. URSODIOL [Concomitant]
     Dosage: 300 MG, 3/D
     Route: 048
  4. LEVOTHYROXINE SODIUM [Concomitant]
     Dosage: 50 MG, DAILY (1/D)
     Route: 048
  5. PREDNISONE [Concomitant]
  6. FOSAMAX [Concomitant]
     Dosage: 70 MG, WEEKLY (1/W)
     Route: 048
  7. ZYPREXA [Concomitant]
     Dosage: 2.5 MG, EACH EVENING
     Route: 060
  8. LEVAQUIN [Concomitant]
     Dosage: 750 MG, QOD
     Route: 048
  9. CELLCEPT [Concomitant]
     Dosage: 500 MG, 2/D
     Route: 048
  10. ERGOCALCIFEROL [Concomitant]
     Dosage: 50000 U, WEEKLY (1/W)
     Route: 048
  11. LASIX [Concomitant]
     Dosage: 40 MG, DAILY (1/D)
     Route: 048
  12. FORTEO [Suspect]
     Indication: OSTEOPOROSIS
     Dosage: 20 UG, DAILY (1/D)
     Dates: start: 20110113, end: 20110115
  13. PROGRAF [Concomitant]
     Dosage: 5 MG, 2/D
     Route: 048
  14. BENEFIBER [Concomitant]
     Dosage: UNK, 2/D
  15. KLOR-CON [Concomitant]
     Dosage: 40 MEQ, DAILY (1/D)
     Route: 048
  16. ZOFRAN [Concomitant]
     Dosage: 4 MG, AS NEEDED
  17. ULTRAM [Concomitant]
     Dosage: 100 MG, AS NEEDED
     Route: 048
  18. CELEXA [Concomitant]
     Dosage: 20 MG, DAILY (1/D)
     Route: 048
  19. ASPIRIN [Concomitant]
     Dosage: 81 MG, DAILY (1/D)
  20. ULTRAM [Concomitant]
     Dosage: 50 MG, AS NEEDED
     Route: 048
  21. CALCIUM PLUS D3 [Concomitant]
     Dosage: UNK, 3/D
     Route: 048
  22. BACLOFEN [Concomitant]
     Dosage: 10 MG, DAILY (1/D)
     Route: 048
  23. AMIODARONE HCL [Concomitant]
     Dosage: 200 MG, DAILY (1/D)
     Route: 048
  24. MULTI-VITAMIN [Concomitant]
     Dosage: UNK, DAILY (1/D)
     Route: 048

REACTIONS (15)
  - ADVERSE REACTION [None]
  - WEIGHT DECREASED [None]
  - DIZZINESS [None]
  - CONSTIPATION [None]
  - PERICARDIAL EFFUSION [None]
  - BACK PAIN [None]
  - HEART RATE INCREASED [None]
  - PAIN [None]
  - INSOMNIA [None]
  - ARTHRALGIA [None]
  - PULMONARY OEDEMA [None]
  - DIARRHOEA [None]
  - HOSPITALISATION [None]
  - PLATELET COUNT DECREASED [None]
  - LIVER DISORDER [None]
